FAERS Safety Report 9056588 (Version 3)
Quarter: 2013Q2

REPORT INFORMATION
  Report Type: Report from Study
  Country: US (occurrence: US)
  Receive Date: 20130204
  Receipt Date: 20130531
  Transmission Date: 20140414
  Serious: Yes (Hospitalization, Other)
  Sender: FDA-Public Use
  Company Number: US-US-EMD SERONO, INC.-7190661

PATIENT
  Age: 52 Year
  Sex: Female
  Weight: 77 kg

DRUGS (9)
  1. REBIF [Suspect]
     Indication: MULTIPLE SCLEROSIS
     Route: 058
     Dates: start: 20111121
  2. TYLENOL [Concomitant]
     Indication: PREMEDICATION
  3. NEURONTIN [Concomitant]
     Indication: ARTHRITIS
  4. FENTNYL PATCH [Concomitant]
     Indication: ARTHRITIS
  5. VICODIN [Concomitant]
     Indication: ARTHRITIS
  6. VICODIN [Concomitant]
     Indication: BACK PAIN
  7. LORTAB [Concomitant]
     Indication: BACK PAIN
  8. LORTAB [Concomitant]
     Indication: MULTIPLE SCLEROSIS
  9. GABAPENTIN [Concomitant]
     Indication: PRODUCT USED FOR UNKNOWN INDICATION

REACTIONS (14)
  - Intervertebral disc protrusion [Not Recovered/Not Resolved]
  - Fall [Unknown]
  - Multiple sclerosis relapse [Recovering/Resolving]
  - Dizziness [Unknown]
  - Syncope [Unknown]
  - Central nervous system lesion [Unknown]
  - Memory impairment [Unknown]
  - Cognitive disorder [Unknown]
  - Balance disorder [Not Recovered/Not Resolved]
  - Gait disturbance [Not Recovered/Not Resolved]
  - Abdominal pain [Not Recovered/Not Resolved]
  - Depression [Recovering/Resolving]
  - Injection site erythema [Unknown]
  - Injection site bruising [Unknown]
